FAERS Safety Report 7362027-X (Version None)
Quarter: 2011Q1

REPORT INFORMATION
  Report Type: 
  Country: None (occurrence: None)
  Receive Date: 20110318
  Receipt Date: 20110308
  Transmission Date: 20110831
  Serious: Yes (Other)
  Sender: FDA-Public Use
  Company Number: US-BAYER-2011-021274

PATIENT
  Sex: Male

DRUGS (5)
  1. SIMVASTATIN [Concomitant]
  2. FINASTERIDE [Concomitant]
  3. PRILOSEC [Concomitant]
  4. LISINOPRIL [Concomitant]
  5. CIPRO [Suspect]
     Indication: EPIDIDYMITIS
     Dosage: 500 MG, BID
     Route: 048
     Dates: start: 20110228, end: 20110304

REACTIONS (2)
  - TENDON DISORDER [None]
  - LOWER EXTREMITY MASS [None]
